FAERS Safety Report 13071814 (Version 3)
Quarter: 2017Q1

REPORT INFORMATION
  Report Type: Spontaneous
  Country: CH (occurrence: CH)
  Receive Date: 20161229
  Receipt Date: 20170116
  Transmission Date: 20170428
  Serious: Yes (Death, Hospitalization)
  Sender: FDA-Public Use
  Company Number: CH-PFIZER INC-2016593390

PATIENT
  Age: 64 Year
  Sex: Female

DRUGS (6)
  1. NAPROXEN. [Suspect]
     Active Substance: NAPROXEN
     Dosage: UNK
  2. PANTOPRAZOL [Suspect]
     Active Substance: PANTOPRAZOLE SODIUM
     Dosage: UNK
  3. SULFASALAZINE. [Suspect]
     Active Substance: SULFASALAZINE
     Dosage: UNK
     Dates: end: 20161006
  4. HUMIRA [Suspect]
     Active Substance: ADALIMUMAB
     Indication: PSORIASIS
     Dosage: UNK
     Route: 048
     Dates: end: 20160920
  5. BISOPROLOL [Suspect]
     Active Substance: BISOPROLOL
     Dosage: UNK
  6. CIPROFLOXACIN. [Suspect]
     Active Substance: CIPROFLOXACIN
     Dosage: UNK

REACTIONS (5)
  - Multiple organ dysfunction syndrome [Fatal]
  - Renal failure [Fatal]
  - Colitis ischaemic [Fatal]
  - Hepatic cirrhosis [Fatal]
  - Gastrointestinal haemorrhage [Fatal]

NARRATIVE: CASE EVENT DATE: 201610
